FAERS Safety Report 10551764 (Version 5)
Quarter: 2015Q1

REPORT INFORMATION
  Report Type: Spontaneous
  Country: IL (occurrence: IL)
  Receive Date: 20141029
  Receipt Date: 20150116
  Transmission Date: 20150720
  Serious: Yes (Other)
  Sender: FDA-Public Use
  Company Number: IL-SHIRE-IL201404267

PATIENT
  Age: 3 Year
  Sex: Male
  Weight: 19 kg

DRUGS (17)
  1. CORTICOSTEROIDS [Concomitant]
     Active Substance: CORTICOSTEROID NOS
     Indication: PRURITUS
  2. ELAPRASE [Suspect]
     Active Substance: IDURSULFASE
     Indication: MUCOPOLYSACCHARIDOSIS II
     Dosage: 6-12 MG, UNKNOWN
     Route: 041
     Dates: start: 20130409
  3. CORTICOSTEROIDS [Concomitant]
     Active Substance: CORTICOSTEROID NOS
     Indication: DYSPNOEA
  4. CORTICOSTEROIDS [Concomitant]
     Active Substance: CORTICOSTEROID NOS
     Indication: URTICARIA
  5. ELAPRASE [Suspect]
     Active Substance: IDURSULFASE
     Dosage: 12 MG, 1X/2WKS (2 VIALS)
     Route: 041
     Dates: start: 20140922
  6. FENISTIL [Concomitant]
     Active Substance: DIMETHINDENE
     Indication: PRODUCT USED FOR UNKNOWN INDICATION
     Dosage: UNK, UNKNOWN
     Route: 065
     Dates: start: 20140825
  7. ELAPRASE [Suspect]
     Active Substance: IDURSULFASE
     Dosage: 12 MG (2 VIALS), UNKNOWN
     Route: 041
     Dates: start: 20140915
  8. BETNESOL                           /00008502/ [Concomitant]
     Indication: PREMEDICATION
     Dosage: UNK, OTHER( IN THE MORNING AT HIS HOME)
     Route: 048
     Dates: start: 20140825
  9. CORTICOSTEROIDS [Concomitant]
     Active Substance: CORTICOSTEROID NOS
     Indication: PREMEDICATION
  10. ANTIHISTAMINES [Concomitant]
     Active Substance: ANTIHISTAMINES NOS
     Indication: PREMEDICATION
  11. ANTIHISTAMINES [Concomitant]
     Active Substance: ANTIHISTAMINES NOS
     Indication: FLUSHING
     Dosage: UNK, UNKNOWN
     Route: 065
     Dates: start: 201408
  12. ANTIHISTAMINES [Concomitant]
     Active Substance: ANTIHISTAMINES NOS
     Indication: PRURITUS
  13. ANTIHISTAMINES [Concomitant]
     Active Substance: ANTIHISTAMINES NOS
     Indication: DYSPNOEA
  14. ELAPRASE [Suspect]
     Active Substance: IDURSULFASE
     Dosage: 6 MG, 1X/2WKS
     Route: 041
     Dates: start: 20140929
  15. LORASTINE [Concomitant]
     Indication: PREMEDICATION
     Dosage: UNK, UNKNOWN
     Route: 065
     Dates: start: 20140825
  16. CORTICOSTEROIDS [Concomitant]
     Active Substance: CORTICOSTEROID NOS
     Indication: FLUSHING
     Dosage: UNK, UNKNOWN
     Route: 065
     Dates: start: 201408
  17. ZANTAC [Concomitant]
     Active Substance: RANITIDINE HYDROCHLORIDE
     Indication: PREMEDICATION
     Dosage: UNK, UNKNOWN
     Route: 065
     Dates: start: 201409

REACTIONS (10)
  - Rhinorrhoea [Unknown]
  - Pyrexia [Unknown]
  - Dyspnoea [Unknown]
  - Pruritus [Recovered/Resolved]
  - Urticaria [Unknown]
  - Vomiting [Recovered/Resolved]
  - Sneezing [Unknown]
  - Rhinitis [Recovered/Resolved]
  - Flushing [Recovered/Resolved]
  - Infusion related reaction [Unknown]

NARRATIVE: CASE EVENT DATE: 201405
